FAERS Safety Report 18650953 (Version 1)
Quarter: 2020Q4

REPORT INFORMATION
  Report Type: Spontaneous
  Country: US (occurrence: US)
  Receive Date: 20201222
  Receipt Date: 20201222
  Transmission Date: 20210114
  Serious: No
  Sender: FDA-Public Use
  Company Number: US-BAYER-2020-283800

PATIENT
  Age: 66 Year
  Sex: Male

DRUGS (1)
  1. MIRALAX [Suspect]
     Active Substance: POLYETHYLENE GLYCOL 3350
     Indication: COLONOSCOPY
     Dosage: MIXING 8.3OZ IN 64 OUNCES OF GATORADE AND DRINK IT EVERY 10 TO 15 MINUTES OVER A 2 HOURS PERIOD
     Route: 048

REACTIONS (3)
  - Off label use [Unknown]
  - Product use complaint [None]
  - Product use in unapproved indication [Unknown]
